FAERS Safety Report 11331770 (Version 1)
Quarter: 2015Q3

REPORT INFORMATION
  Report Type: Spontaneous
  Country: US (occurrence: US)
  Receive Date: 20150803
  Receipt Date: 20150803
  Transmission Date: 20151125
  Serious: Yes (Other)
  Sender: FDA-Public Use
  Company Number: US-ELI_LILLY_AND_COMPANY-US200803005709

PATIENT
  Age: 55 Year
  Sex: Female

DRUGS (1)
  1. ZYPREXA INTRAMUSCULAR [Suspect]
     Active Substance: OLANZAPINE
     Indication: SCHIZOPHRENIA
     Dosage: 10 MG, UNK
     Route: 030
     Dates: start: 20080316, end: 20080316

REACTIONS (4)
  - Neuroleptic malignant syndrome [Unknown]
  - Pyrexia [Unknown]
  - Mental status changes [Unknown]
  - Somnolence [Unknown]

NARRATIVE: CASE EVENT DATE: 200803
